FAERS Safety Report 19503295 (Version 1)
Quarter: 2021Q3

REPORT INFORMATION
  Report Type: Spontaneous
  Country: AT (occurrence: AT)
  Receive Date: 20210707
  Receipt Date: 20210707
  Transmission Date: 20211014
  Serious: Yes (Other)
  Sender: FDA-Public Use
  Company Number: NVSC2021AT148590

PATIENT
  Age: 34 Year
  Sex: Female

DRUGS (3)
  1. TRAMETINIB [Suspect]
     Active Substance: TRAMETINIB
     Indication: PRODUCT USED FOR UNKNOWN INDICATION
     Dosage: UNK
     Route: 065
     Dates: start: 201710, end: 201807
  2. DABRAFENIB [Suspect]
     Active Substance: DABRAFENIB
     Indication: PRODUCT USED FOR UNKNOWN INDICATION
     Dosage: UNK
     Route: 065
     Dates: start: 201710, end: 201805
  3. NIVOLUMAB [Concomitant]
     Active Substance: NIVOLUMAB
     Indication: PRODUCT USED FOR UNKNOWN INDICATION
     Dosage: 3 MG/KG
     Route: 065
     Dates: start: 201712, end: 201803

REACTIONS (4)
  - Pyrexia [Unknown]
  - Therapy partial responder [Unknown]
  - Uveitis [Unknown]
  - Rash [Unknown]
